FAERS Safety Report 4908246-0 (Version None)
Quarter: 2006Q1

REPORT INFORMATION
  Report Type: 
  Country: None (occurrence: None)
  Receive Date: 20060210
  Receipt Date: 20060117
  Transmission Date: 20060701
  Serious: Yes (Disabling, Other)
  Sender: FDA-Public Use
  Company Number: 2006UW01754

PATIENT
  Age: 71 Year
  Sex: Male

DRUGS (10)
  1. CRESTOR [Suspect]
     Route: 048
     Dates: start: 20031001, end: 20040101
  2. CRESTOR [Suspect]
     Route: 048
     Dates: start: 20040101, end: 20040901
  3. CRESTOR [Suspect]
     Route: 048
     Dates: start: 20040901, end: 20050101
  4. CRESTOR [Suspect]
     Route: 048
     Dates: start: 20050101, end: 20050601
  5. CRESTOR [Suspect]
     Route: 048
     Dates: start: 20050601, end: 20060101
  6. CRESTOR [Suspect]
     Route: 048
     Dates: start: 20060101
  7. NEXIUM [Concomitant]
     Route: 048
     Dates: start: 20011201
  8. PLAVIX [Concomitant]
     Route: 048
     Dates: start: 20041201, end: 20060101
  9. ATENOLOL [Concomitant]
     Route: 048
     Dates: start: 20030501
  10. ALTACE [Concomitant]
     Route: 048
     Dates: start: 20041201

REACTIONS (5)
  - ABDOMINAL PAIN [None]
  - DIPLOPIA [None]
  - DYSPNOEA [None]
  - HYPERHIDROSIS [None]
  - MUSCLE TIGHTNESS [None]
